FAERS Safety Report 22871325 (Version 3)
Quarter: 2024Q3

REPORT INFORMATION
  Report Type: Spontaneous
  Country: DE (occurrence: DE)
  Receive Date: 20230828
  Receipt Date: 20240814
  Transmission Date: 20241016
  Serious: Yes (Hospitalization, Other)
  Sender: SANDOZ
  Company Number: DE-Shilpa Medicare Limited-SML-DE-2023-01189

PATIENT
  Age: 42 Year
  Sex: Male

DRUGS (11)
  1. THYMOCYTE IMMUNE GLOBULIN NOS [Suspect]
     Active Substance: THYMOCYTE IMMUNE GLOBULIN NOS
     Indication: Immunosuppression
     Dosage: 30?MG/KG BODYWEIGHT/DAY OVER 6-12?H
     Route: 065
  2. BUSULFAN [Suspect]
     Active Substance: BUSULFAN
     Indication: Allogenic stem cell transplantation
     Dosage: 1.6 MG/KG, QD (-5 DAY)
     Route: 042
  3. BUSULFAN [Suspect]
     Active Substance: BUSULFAN
     Indication: Leukoencephalopathy
     Dosage: 3.2 MG/KG, QD, (-7 DAY AND -6 DAY)
     Route: 042
  4. BUSULFAN [Suspect]
     Active Substance: BUSULFAN
     Indication: Bone marrow conditioning regimen
     Dosage: 8 MG/KG
     Route: 042
  5. BUSULFAN [Suspect]
     Active Substance: BUSULFAN
     Dosage: 8 MG/KG
     Route: 042
  6. CYCLOSPORINE [Suspect]
     Active Substance: CYCLOSPORINE
     Indication: Immunosuppressant drug therapy
     Route: 065
  7. FLUDARABINE [Suspect]
     Active Substance: FLUDARABINE PHOSPHATE
     Indication: Allogenic stem cell transplantation
     Dosage: 180 MG/M2, QD, 30 MG/M2, QD (-8 TO -3 DAYS) OVER 30 MIN (TOTAL 180 MG/M2)
     Route: 065
  8. FLUDARABINE [Suspect]
     Active Substance: FLUDARABINE PHOSPHATE
     Indication: Bone marrow conditioning regimen
     Dosage: 30 MG/M2, QD  (-8 TO -3 DAYS) OVER 30 MIN (TOTAL 180 MG/M2)
     Route: 042
  9. FLUDARABINE [Suspect]
     Active Substance: FLUDARABINE PHOSPHATE
     Indication: Leukoencephalopathy
  10. METHOTREXATE [Suspect]
     Active Substance: METHOTREXATE
     Dosage: 10 MG/KG, BODY WEIGHT ON DAY +3 AND +6
     Route: 042
  11. METHOTREXATE [Suspect]
     Active Substance: METHOTREXATE
     Indication: Immunosuppression
     Dosage: 15 MG/M2 ON DAY +1
     Route: 042

REACTIONS (8)
  - Vomiting [Recovered/Resolved]
  - Nausea [Recovered/Resolved]
  - Acute kidney injury [Recovered/Resolved]
  - Fall [Unknown]
  - Fracture [Unknown]
  - Disease progression [Unknown]
  - Drug ineffective [Unknown]
  - Gait disturbance [Unknown]
